FAERS Safety Report 9221539 (Version 1)
Quarter: 2013Q1

REPORT INFORMATION
  Report Type: Spontaneous
  Country: US (occurrence: None)
  Receive Date: 20120831
  Receipt Date: 20120831
  Transmission Date: 20140127
  Serious: Yes (Death)
  Sender: FDA-Public Use
  Company Number: 1000031458

PATIENT
  Age: 75 Year
  Sex: Male

DRUGS (8)
  1. DALIRESP [Suspect]
     Indication: CHRONIC OBSTRUCTIVE PULMONARY DISEASE
     Route: 048
     Dates: start: 20120616, end: 20120625
  2. AMLODIPINE (AMLODIPINE) (AMLODIPINE) [Concomitant]
  3. BENAZEPRIL (BENAZEPRIL) (BENAZEPRIL) [Concomitant]
  4. CRESTOR (ROSUVASTATIN) (ROSUVASTATIN) [Concomitant]
  5. SPIRIVA (TIOTROPIUM BROMIDE) (TIOTROPIUM BROMIDE) [Concomitant]
  6. WARFARIN (WARFARIN) (WARFARIN) [Concomitant]
  7. SYMBICORT [Concomitant]
  8. PREDNISONE [Concomitant]

REACTIONS (1)
  - Completed suicide [None]
